FAERS Safety Report 15051273 (Version 1)
Quarter: 2018Q2

REPORT INFORMATION
  Report Type: Spontaneous
  Country: US (occurrence: US)
  Receive Date: 20180622
  Receipt Date: 20180622
  Transmission Date: 20180711
  Serious: Yes (Other)
  Sender: FDA-Public Use
  Company Number: US-ASTELLAS-2017US023812

PATIENT
  Sex: Female

DRUGS (1)
  1. VESICARE [Suspect]
     Active Substance: SOLIFENACIN SUCCINATE
     Indication: PRODUCT USED FOR UNKNOWN INDICATION
     Route: 048
     Dates: start: 2015

REACTIONS (22)
  - Headache [Unknown]
  - Constipation [Unknown]
  - Dyspnoea [Unknown]
  - Oropharyngeal pain [Unknown]
  - Nausea [Unknown]
  - Palpitations [Unknown]
  - Dry mouth [Unknown]
  - Vomiting [Unknown]
  - Somnolence [Unknown]
  - Heart rate increased [Unknown]
  - Urinary retention [Unknown]
  - Feeling hot [Unknown]
  - Hypertension [Unknown]
  - Cough [Unknown]
  - Fatigue [Unknown]
  - Dizziness [Unknown]
  - Vision blurred [Unknown]
  - Head discomfort [Unknown]
  - Dyspepsia [Unknown]
  - Dry eye [Unknown]
  - Asthenia [Unknown]
  - Peripheral swelling [Unknown]
